FAERS Safety Report 5484993-X (Version None)
Quarter: 2007Q4

REPORT INFORMATION
  Report Type: 
  Country: None (occurrence: None)
  Receive Date: 20071011
  Receipt Date: 20071001
  Transmission Date: 20080405
  Serious: Yes (Hospitalization)
  Sender: FDA-Public Use
  Company Number: 2007BI019324

PATIENT
  Age: 54 Year
  Sex: Female
  Weight: 86.1834 kg

DRUGS (1)
  1. NATALIZUMAB [Suspect]
     Indication: MULTIPLE SCLEROSIS
     Dosage: 300 MG; QM ; IV
     Route: 042
     Dates: start: 20060915

REACTIONS (5)
  - CATHETER SITE PAIN [None]
  - FALL [None]
  - GAIT DISTURBANCE [None]
  - GROIN PAIN [None]
  - PELVIC FRACTURE [None]
